FAERS Safety Report 6993633-X (Version None)
Quarter: 2010Q3

REPORT INFORMATION
  Report Type: 
  Country: None (occurrence: None)
  Receive Date: 20100917
  Receipt Date: 20100331
  Transmission Date: 20110219
  Serious: Yes (Other)
  Sender: FDA-Public Use
  Company Number: US-ASTRAZENECA-2009SE15704

PATIENT

DRUGS (5)
  1. SEROQUEL [Suspect]
     Route: 048
     Dates: start: 20000501
  2. ZYPREXA [Concomitant]
     Route: 048
     Dates: start: 20000801
  3. XANAX [Concomitant]
     Dates: start: 20000801
  4. PROZAC [Concomitant]
  5. WELLBUTRIN [Concomitant]
     Route: 048
     Dates: start: 20010201

REACTIONS (1)
  - TYPE 2 DIABETES MELLITUS [None]
